FAERS Safety Report 6844322-3 (Version None)
Quarter: 2010Q2

REPORT INFORMATION
  Report Type: 
  Country: None (occurrence: None)
  Receive Date: 20100629
  Receipt Date: 20100407
  Transmission Date: 20101027
  Serious: No
  Sender: FDA-Public Use
  Company Number: US-WYE-H14489210

PATIENT
  Age: 46 Year
  Sex: Female
  Weight: 68.1 kg

DRUGS (4)
  1. PRISTIQ [Suspect]
     Indication: HOT FLUSH
     Dosage: 100 MG 1X PER 1 DAY, ORAL 50 MG 1X PER 1 DAY, UNKNOWN
     Route: 048
     Dates: start: 20090101, end: 20100405
  2. PRISTIQ [Suspect]
     Indication: HOT FLUSH
     Dosage: 100 MG 1X PER 1 DAY, ORAL 50 MG 1X PER 1 DAY, UNKNOWN
     Route: 048
     Dates: start: 20100406
  3. SINEQUAN [Concomitant]
  4. ATIVAN [Concomitant]

REACTIONS (4)
  - CONDITION AGGRAVATED [None]
  - CONSTIPATION [None]
  - DEPRESSION [None]
  - DIARRHOEA [None]
